FAERS Safety Report 5072512-1 (Version None)
Quarter: 2006Q3

REPORT INFORMATION
  Report Type: 
  Country: None (occurrence: None)
  Receive Date: 20060807
  Receipt Date: 20060731
  Transmission Date: 20061208
  Serious: Yes (Other)
  Sender: FDA-Public Use
  Company Number: PH-MERCK-0608PHL00001

PATIENT
  Age: 55 Year
  Sex: Female

DRUGS (2)
  1. FOSAMAX PLUS [Suspect]
     Indication: OSTEOPOROSIS
     Route: 048
     Dates: start: 20060201
  2. [THERAPY UNSPECIFIED] [Concomitant]
     Indication: HYPERTENSION
     Route: 065

REACTIONS (3)
  - HYPERAESTHESIA [None]
  - PRURITUS [None]
  - SKIN DISORDER [None]
